FAERS Safety Report 22069559 (Version 1)
Quarter: 2023Q1

REPORT INFORMATION
  Report Type: Spontaneous
  Country: US (occurrence: None)
  Receive Date: 20230306
  Receipt Date: 20230306
  Transmission Date: 20230418
  Serious: Yes (Hospitalization)
  Sender: FDA-Public Use
  Company Number: None

PATIENT
  Age: 57 Year
  Sex: Female

DRUGS (1)
  1. GLATIRAMER [Suspect]
     Active Substance: GLATIRAMER

REACTIONS (5)
  - Chest pain [None]
  - Chest discomfort [None]
  - Hypoaesthesia oral [None]
  - Hypoaesthesia [None]
  - Exploding head syndrome [None]

NARRATIVE: CASE EVENT DATE: 20180515
